FAERS Safety Report 5009507-X (Version None)
Quarter: 2006Q2

REPORT INFORMATION
  Report Type: 
  Country: None (occurrence: None)
  Receive Date: 20060522
  Receipt Date: 20060509
  Transmission Date: 20061013
  Serious: Yes (Other)
  Sender: FDA-Public Use
  Company Number: 2006062285

PATIENT

DRUGS (4)
  1. LYRICA [Suspect]
     Indication: PAIN
     Dosage: 300 MG (75 MG, 4 IN 1 D), ORAL
     Route: 048
     Dates: start: 20051226
  2. NEURONTIN [Suspect]
     Indication: PAIN
     Dosage: 2400 MG (600 MG, 4 IN 1 D), ORAL
     Route: 048
     Dates: start: 19990101
  3. SKELAXIN [Concomitant]
  4. VICOPROFEN [Concomitant]

REACTIONS (3)
  - FALSE POSITIVE LABORATORY RESULT [None]
  - TRANSMISSION OF DRUG VIA SEMEN [None]
  - TRISOMY 21 [None]
